FAERS Safety Report 10044394 (Version 1)
Quarter: 2014Q1

REPORT INFORMATION
  Report Type: Spontaneous
  Country: GB (occurrence: None)
  Receive Date: 20140326
  Receipt Date: 20140326
  Transmission Date: 20141002
  Serious: Yes (Life-Threatening)
  Sender: FDA-Public Use
  Company Number: 2014P1002400

PATIENT
  Age: 54 Year
  Sex: Male
  Weight: 81 kg

DRUGS (1)
  1. CIPROFLOXACIN [Suspect]
     Dates: start: 20140217

REACTIONS (5)
  - Paraesthesia oral [None]
  - Muscle spasms [None]
  - Depressed mood [None]
  - Anxiety [None]
  - Cardiac arrest [None]
